FAERS Safety Report 8162009-4 (Version None)
Quarter: 2012Q1

REPORT INFORMATION
  Report Type: 
  Country: None (occurrence: None)
  Receive Date: 20120224
  Receipt Date: 20111128
  Transmission Date: 20120608
  Serious: No
  Sender: FDA-Public Use
  Company Number: US-BRISTOL-MYERS SQUIBB COMPANY-16252694

PATIENT
  Age: 87 Year
  Sex: Male

DRUGS (2)
  1. GLUCOPHAGE [Suspect]
     Indication: DIABETES MELLITUS
  2. METFORMIN HCL [Suspect]
     Indication: DIABETES MELLITUS

REACTIONS (1)
  - ERECTILE DYSFUNCTION [None]
